FAERS Safety Report 15157330 (Version 1)
Quarter: 2018Q3

REPORT INFORMATION
  Report Type: Report from Study
  Country: ES (occurrence: ES)
  Receive Date: 20180718
  Receipt Date: 20180718
  Transmission Date: 20181010
  Serious: Yes (Life-Threatening)
  Sender: FDA-Public Use
  Company Number: ES-TEVA-2018-ES-928365

PATIENT
  Age: 13 Year
  Sex: Male

DRUGS (9)
  1. VINCRISTINA SULFATO (809SU) [Suspect]
     Active Substance: VINCRISTINE SULFATE
     Indication: ACUTE LYMPHOCYTIC LEUKAEMIA
     Route: 042
     Dates: start: 20170816, end: 20170821
  2. MERCAPTOPURINA (405A) [Suspect]
     Active Substance: MERCAPTOPURINE
     Indication: ACUTE LYMPHOCYTIC LEUKAEMIA
     Dosage: 200 MILLIGRAM DAILY;
     Route: 042
     Dates: start: 20170816, end: 20170822
  3. ERWINA ? ERWINASE 10.000 UI INYECTABLE [REINO UNIDO] [Suspect]
     Active Substance: ASPARAGINASE
     Indication: ACUTE LYMPHOCYTIC LEUKAEMIA
     Route: 030
     Dates: start: 20170821, end: 20170829
  4. ACICLOVIR (201A) [Concomitant]
     Active Substance: ACYCLOVIR
     Indication: PROPHYLAXIS
     Dosage: 1200 MILLIGRAM DAILY;
     Route: 048
     Dates: start: 20170815
  5. METOTREXATO (418A) [Suspect]
     Active Substance: METHOTREXATE
     Indication: ACUTE LYMPHOCYTIC LEUKAEMIA
     Dosage: 670 MILLIGRAM DAILY;
     Route: 042
     Dates: start: 20170816, end: 20170818
  6. DEXAMETASONA (722A) [Suspect]
     Active Substance: DEXAMETHASONE
     Indication: ACUTE LYMPHOCYTIC LEUKAEMIA
     Dosage: 40 MILLIGRAM DAILY;
     Route: 042
     Dates: start: 20170816, end: 20170822
  7. DEXAMETASONA (722A) [Suspect]
     Active Substance: DEXAMETHASONE
     Indication: PROPHYLAXIS
     Route: 031
     Dates: start: 20170822, end: 20170824
  8. SEPTRIN FORTE 160 MG/800 MG COMPRIMIDOS, 20 COMPRIMIDOS [Concomitant]
     Indication: PROPHYLAXIS
     Dosage: 1 DOSAGE FORMS DAILY;
     Route: 048
     Dates: start: 20170815
  9. CITARABINA (124A) [Suspect]
     Active Substance: CYTARABINE
     Indication: ACUTE LYMPHOCYTIC LEUKAEMIA
     Dosage: 4000 MILLIGRAM DAILY;
     Route: 042
     Dates: start: 20170820, end: 20170821

REACTIONS (4)
  - Pancytopenia [Recovered/Resolved]
  - Catheter site infection [Recovered/Resolved]
  - Stomatitis [Recovered/Resolved]
  - Anal inflammation [Recovered/Resolved]

NARRATIVE: CASE EVENT DATE: 20170824
